FAERS Safety Report 8437916 (Version 2)
Quarter: 2015Q4

REPORT INFORMATION
  Report Type: Spontaneous
  Country: US (occurrence: US)
  Receive Date: 20120302
  Receipt Date: 20151207
  Transmission Date: 20160305
  Serious: No
  Sender: FDA-Public Use
  Company Number: US-ROCHE-GNE238652

PATIENT
  Age: 79 Year
  Sex: Male
  Weight: 81.72 kg

DRUGS (11)
  1. ALBUTEROL. [Concomitant]
     Active Substance: ALBUTEROL
  2. PROVENTIL [Concomitant]
     Active Substance: ALBUTEROL
  3. ALBUTEROL. [Concomitant]
     Active Substance: ALBUTEROL
  4. LUCENTIS [Suspect]
     Active Substance: RANIBIZUMAB
     Indication: NEOVASCULAR AGE-RELATED MACULAR DEGENERATION
     Dosage: 0.5 MG, 1/MONTH
     Route: 031
     Dates: start: 200611
  5. HYDROCHLOROTHIAZIDE. [Concomitant]
     Active Substance: HYDROCHLOROTHIAZIDE
     Indication: HYPERTENSION
  6. OMEGA 3 [Concomitant]
     Active Substance: OMEGA-3 FATTY ACIDS
  7. XOPENEX [Concomitant]
     Active Substance: LEVALBUTEROL HYDROCHLORIDE
     Indication: PRODUCT USED FOR UNKNOWN INDICATION
     Route: 045
  8. FISH OIL [Concomitant]
     Active Substance: FISH OIL
     Indication: PRODUCT USED FOR UNKNOWN INDICATION
  9. PROVENTIL [Concomitant]
     Active Substance: ALBUTEROL
  10. PREVACID [Concomitant]
     Active Substance: LANSOPRAZOLE
     Indication: PRODUCT USED FOR UNKNOWN INDICATION
  11. ADVAIR HFA [Concomitant]
     Active Substance: FLUTICASONE PROPIONATE\SALMETEROL XINAFOATE

REACTIONS (7)
  - Photosensitivity reaction [Not Recovered/Not Resolved]
  - Glare [Not Recovered/Not Resolved]
  - Photophobia [Not Recovered/Not Resolved]
  - Eye disorder [Unknown]
  - Lung infection [Unknown]
  - Photosensitivity reaction [Not Recovered/Not Resolved]
  - Visual acuity reduced [Unknown]

NARRATIVE: CASE EVENT DATE: 200611
